FAERS Safety Report 5114584-1 (Version None)
Quarter: 2006Q3

REPORT INFORMATION
  Report Type: 
  Country: None (occurrence: None)
  Receive Date: 20060922
  Receipt Date: 20060922
  Transmission Date: 20061208
  Serious: Yes (Other)
  Sender: FDA-Public Use
  Company Number: None

PATIENT
  Sex: Male
  Weight: 16 kg

DRUGS (3)
  1. SINGULAIR [Suspect]
     Indication: ASTHMA
     Dosage: 4MG  DAILY    PO
     Route: 048
     Dates: start: 20050214, end: 20060920
  2. FLOVENT [Suspect]
     Indication: ASTHMA
     Dosage: ONE TO TWO PUFFS, INHALED   TWICE DAILY   OTHER
     Route: 050
     Dates: start: 20050214, end: 20060920
  3. ALBUTEROL [Concomitant]

REACTIONS (4)
  - AGGRESSION [None]
  - EDUCATIONAL PROBLEM [None]
  - THERAPEUTIC RESPONSE UNEXPECTED [None]
  - THERAPY CESSATION [None]
